FAERS Safety Report 15293510 (Version 1)
Quarter: 2018Q3

REPORT INFORMATION
  Report Type: Report from Study
  Country: US (occurrence: US)
  Receive Date: 20180820
  Receipt Date: 20180820
  Transmission Date: 20181010
  Serious: Yes (Hospitalization)
  Sender: FDA-Public Use
  Company Number: US-ROCHE-2142789

PATIENT
  Age: 76 Year
  Sex: Male
  Weight: 90.8 kg

DRUGS (14)
  1. ESBRIET [Suspect]
     Active Substance: PIRFENIDONE
     Dosage: 3 TABLETS 3 TIMES PER DAY
     Route: 048
     Dates: start: 20180605, end: 20180710
  2. ESBRIET [Suspect]
     Active Substance: PIRFENIDONE
     Dosage: 1 TAB TID,DAY 1?7 WITH MEAL,INITIAL DOSE
     Route: 048
  3. ESBRIET [Suspect]
     Active Substance: PIRFENIDONE
     Route: 048
     Dates: start: 201805, end: 201807
  4. AMLODIPINE [Concomitant]
     Active Substance: AMLODIPINE BESYLATE
     Route: 048
  5. PERCOCET [Concomitant]
     Active Substance: ACETAMINOPHEN\OXYCODONE HYDROCHLORIDE
     Dosage: 5?325 1? 2 TABLET AS NEEDED
     Route: 048
  6. OMEPRAZOLE. [Concomitant]
     Active Substance: OMEPRAZOLE
     Route: 048
  7. ASPIRIN. [Concomitant]
     Active Substance: ASPIRIN
     Route: 048
  8. TAMSULOSIN [Concomitant]
     Active Substance: TAMSULOSIN
     Route: 048
  9. ESBRIET [Suspect]
     Active Substance: PIRFENIDONE
     Dosage: 2 TAB TID,DAY 8?14 WITH MEAL,INITIAL DOSE
     Route: 048
  10. METOPROLOL. [Concomitant]
     Active Substance: METOPROLOL
     Route: 048
  11. TERBINAFINE. [Concomitant]
     Active Substance: TERBINAFINE
     Route: 048
  12. ESBRIET [Suspect]
     Active Substance: PIRFENIDONE
     Indication: IDIOPATHIC PULMONARY FIBROSIS
     Dosage: NEVER FILLED, TAKEN ABOUT 2 MONTHS, TAKES 9 PER DAY
     Route: 048
  13. ESBRIET [Suspect]
     Active Substance: PIRFENIDONE
     Dosage: 3 TAB TID,DAY 15 ONWORD WITH MEAL,INITIAL DOSE
     Route: 048
  14. ESBRIET [Suspect]
     Active Substance: PIRFENIDONE
     Dosage: 3 TABLETS 3 TIMES PER DAY
     Route: 048

REACTIONS (7)
  - Hydronephrosis [Not Recovered/Not Resolved]
  - Nephrolithiasis [Recovered/Resolved]
  - Ureterolithiasis [Recovered/Resolved]
  - Infection [Not Recovered/Not Resolved]
  - Pain [Not Recovered/Not Resolved]
  - Fatigue [Not Recovered/Not Resolved]
  - Hydroureter [Not Recovered/Not Resolved]

NARRATIVE: CASE EVENT DATE: 20180711
